FAERS Safety Report 4387994-8 (Version None)
Quarter: 2004Q2

REPORT INFORMATION
  Report Type: 
  Country: None (occurrence: None)
  Receive Date: 20040607
  Receipt Date: 20030916
  Transmission Date: 20050107
  Serious: Yes (Other)
  Sender: FDA-Public Use
  Company Number: 347188

PATIENT
  Sex: Female

DRUGS (1)
  1. ACCUTANE [Suspect]
     Indication: ACNE
     Dosage: ORAL
     Route: 048

REACTIONS (7)
  - ANHEDONIA [None]
  - DEPRESSED MOOD [None]
  - DEPRESSION [None]
  - FATIGUE [None]
  - HYPERSOMNIA [None]
  - SLEEP DISORDER [None]
  - WEIGHT INCREASED [None]
